FAERS Safety Report 8869306 (Version 1)
Quarter: 2012Q4

REPORT INFORMATION
  Report Type: 
  Country: US (occurrence: US)
  Receive Date: 20121023
  Receipt Date: 20121023
  Transmission Date: 20130627
  Serious: No
  Sender: FDA-Public Use
  Company Number: US-AMGEN-USASP2012052187

PATIENT
  Sex: Female

DRUGS (1)
  1. ENBREL [Suspect]
     Indication: RHEUMATOID ARTHRITIS
     Dosage: UNK mg, 2 times/wk
     Dates: start: 19991001

REACTIONS (2)
  - Myalgia [Not Recovered/Not Resolved]
  - Plantar fasciitis [Not Recovered/Not Resolved]
